FAERS Safety Report 12203025 (Version 2)
Quarter: 2016Q2

REPORT INFORMATION
  Report Type: Spontaneous
  Country: US (occurrence: US)
  Receive Date: 20160323
  Receipt Date: 20160407
  Transmission Date: 20160815
  Serious: Yes (Hospitalization)
  Sender: FDA-Public Use
  Company Number: US-ROCHE-1671218

PATIENT
  Sex: Female

DRUGS (1)
  1. ESBRIET [Suspect]
     Active Substance: PIRFENIDONE
     Indication: IDIOPATHIC PULMONARY FIBROSIS
     Route: 048
     Dates: start: 20151105

REACTIONS (8)
  - Gastrooesophageal reflux disease [Unknown]
  - Nausea [Unknown]
  - Feeding disorder [Unknown]
  - Decreased appetite [Unknown]
  - Weight decreased [Unknown]
  - Clostridium difficile infection [Unknown]
  - Alopecia [Unknown]
  - Diarrhoea [Unknown]
